FAERS Safety Report 25899177 (Version 1)
Quarter: 2025Q4

REPORT INFORMATION
  Report Type: Spontaneous
  Country: EU (occurrence: EU)
  Receive Date: 20251009
  Receipt Date: 20251009
  Transmission Date: 20260117
  Serious: Yes (Death)
  Sender: JOHNSON AND JOHNSON
  Company Number: EU-JNJFOC-20251005756

PATIENT

DRUGS (1)
  1. DARZALEX [Suspect]
     Active Substance: DARATUMUMAB
     Indication: Amyloidosis
     Route: 065

REACTIONS (1)
  - Amyloidosis [Fatal]
